FAERS Safety Report 16664022 (Version 1)
Quarter: 2019Q3

REPORT INFORMATION
  Report Type: Spontaneous
  Country: US (occurrence: US)
  Receive Date: 20190619
  Receipt Date: 20190619
  Transmission Date: 20191004
  Serious: No
  Sender: FDA-Public Use
  Company Number: None

PATIENT
  Age: 75 Year
  Sex: Female
  Weight: 72.12 kg

DRUGS (11)
  1. TIZANIDINE 2 MG [Suspect]
     Active Substance: TIZANIDINE
     Indication: MUSCLE RELAXANT THERAPY
     Dosage: ?          QUANTITY:1 DF DOSAGE FORM;??
     Route: 048
     Dates: end: 20190605
  2. MCT OIL [Concomitant]
  3. METFORMIN [Concomitant]
     Active Substance: METFORMIN HYDROCHLORIDE
  4. VITAMIN D [Concomitant]
     Active Substance: VITAMIN D NOS
  5. OMEGA FATTY ACIDS [Concomitant]
     Active Substance: FISH OIL\OMEGA-3 FATTY ACIDS
  6. LOSARTAN. [Concomitant]
     Active Substance: LOSARTAN
  7. FENOFIBRATE. [Concomitant]
     Active Substance: FENOFIBRATE
  8. VITAMIN B12 [Concomitant]
     Active Substance: CYANOCOBALAMIN
  9. PRAVASTATIN. [Concomitant]
     Active Substance: PRAVASTATIN
  10. POTASSIUM CLORIDE [Concomitant]
  11. PROPRANOLOL [Concomitant]
     Active Substance: PROPRANOLOL HYDROCHLORIDE

REACTIONS (2)
  - Nightmare [None]
  - Panic reaction [None]
